FAERS Safety Report 18027546 (Version 1)
Quarter: 2020Q3

REPORT INFORMATION
  Report Type: Spontaneous
  Country: US (occurrence: US)
  Receive Date: 20200715
  Receipt Date: 20200715
  Transmission Date: 20201103
  Serious: No
  Sender: FDA-Public Use
  Company Number: US-JNJFOC-20200714501

PATIENT
  Sex: Male

DRUGS (3)
  1. TREMFYA [Suspect]
     Active Substance: GUSELKUMAB
     Indication: PSORIASIS
     Route: 058
     Dates: start: 201306
  2. TREMFYA [Suspect]
     Active Substance: GUSELKUMAB
  3. OTEZLA [Concomitant]
     Active Substance: APREMILAST
     Indication: ARTHRITIS
     Route: 065

REACTIONS (1)
  - Arthralgia [Unknown]
